FAERS Safety Report 5459952-3 (Version None)
Quarter: 2007Q3

REPORT INFORMATION
  Report Type: 
  Country: None (occurrence: None)
  Receive Date: 20070919
  Receipt Date: 20070430
  Transmission Date: 20080115
  Serious: Yes (Other)
  Sender: FDA-Public Use
  Company Number: US-ASTRAZENECA-2007UW09275

PATIENT
  Sex: Male
  Weight: 59.5 kg

DRUGS (3)
  1. SEROQUEL [Suspect]
     Indication: DEPRESSION
     Route: 048
  2. SEROQUEL [Suspect]
     Indication: ANXIETY
     Route: 048
  3. ZYPREXA [Concomitant]

REACTIONS (3)
  - DIABETIC COMA [None]
  - PANCREATITIS [None]
  - TYPE 2 DIABETES MELLITUS [None]
